FAERS Safety Report 21959490 (Version 1)
Quarter: 2023Q1

REPORT INFORMATION
  Report Type: Report from Study
  Country: US (occurrence: US)
  Receive Date: 20230206
  Receipt Date: 20230206
  Transmission Date: 20230417
  Serious: No
  Sender: FDA-Public Use
  Company Number: US-INCYTE CORPORATION-2022IN012778

PATIENT

DRUGS (1)
  1. JAKAFI [Suspect]
     Active Substance: RUXOLITINIB
     Dosage: 20 MILLIGRAM, BID (TAKE 1 TABLET BY MOUTH IN THE MORNING AND 1 TABLET BEFORE BEDTIME. TAKE AT ABOUT
     Route: 048

REACTIONS (1)
  - Malaise [Unknown]
